FAERS Safety Report 10682247 (Version 2)
Quarter: 2015Q1

REPORT INFORMATION
  Report Type: Spontaneous
  Country: JP (occurrence: JP)
  Receive Date: 20141230
  Receipt Date: 20150122
  Transmission Date: 20150720
  Serious: Yes (Hospitalization, Other)
  Sender: FDA-Public Use
  Company Number: JP-SA-2014SA178309

PATIENT
  Age: 74 Year
  Sex: Male

DRUGS (3)
  1. MYSLEE [Suspect]
     Active Substance: ZOLPIDEM TARTRATE
     Indication: PRODUCT USED FOR UNKNOWN INDICATION
     Dosage: MYSLEE (ZOLPIDEM) TABLET, 10 MG
     Route: 048
  2. DEPAKENE [Concomitant]
     Active Substance: VALPROIC ACID
     Route: 048
  3. MYSLEE [Suspect]
     Active Substance: ZOLPIDEM TARTRATE
     Indication: PRODUCT USED FOR UNKNOWN INDICATION
     Dosage: MYSLEE (ZOLPIDEM) TABLET, 10 MG
     Route: 048

REACTIONS (3)
  - Subcutaneous emphysema [Recovering/Resolving]
  - Dyspnoea [Recovered/Resolved]
  - Accidental overdose [Unknown]
